FAERS Safety Report 8282731-9 (Version None)
Quarter: 2012Q2

REPORT INFORMATION
  Report Type: 
  Country: None (occurrence: None)
  Receive Date: 20120413
  Receipt Date: 20120410
  Transmission Date: 20120825
  Serious: Yes (Disabling, Other)
  Sender: FDA-Public Use
  Company Number: US-ABBOTT-11P-163-0880560-00

PATIENT
  Sex: Female
  Weight: 58.112 kg

DRUGS (4)
  1. HUMIRA [Suspect]
     Indication: RHEUMATOID ARTHRITIS
     Dates: start: 20090101
  2. HUMIRA [Suspect]
     Dates: start: 20110901, end: 20111201
  3. METHOTREXATE [Concomitant]
     Indication: PRODUCT USED FOR UNKNOWN INDICATION
     Route: 050
  4. HUMIRA [Suspect]
     Dates: start: 20120301

REACTIONS (19)
  - RETINAL DETACHMENT [None]
  - VISUAL ACUITY REDUCED [None]
  - ACNE [None]
  - EYE OEDEMA [None]
  - LACRIMATION INCREASED [None]
  - MENISCUS LESION [None]
  - GAIT DISTURBANCE [None]
  - JOINT SWELLING [None]
  - SCLERAL DEGENERATION [None]
  - CATARACT [None]
  - EYE DISORDER [None]
  - RHEUMATOID ARTHRITIS [None]
  - VISION BLURRED [None]
  - ARTHRALGIA [None]
  - ARTHROPATHY [None]
  - EYE HAEMORRHAGE [None]
  - COGNITIVE DISORDER [None]
  - OSTEOARTHRITIS [None]
  - MENISCAL DEGENERATION [None]
